FAERS Safety Report 6396568-9 (Version None)
Quarter: 2009Q4

REPORT INFORMATION
  Report Type: 
  Country: None (occurrence: None)
  Receive Date: 20091008
  Receipt Date: 20091008
  Transmission Date: 20100525
  Serious: Yes (Hospitalization)
  Sender: FDA-Public Use
  Company Number: None

PATIENT
  Sex: Female
  Weight: 63.6 kg

DRUGS (1)
  1. BUPROPION HCL [Suspect]
     Indication: DRUG WITHDRAWAL SYNDROME
     Dosage: 1 X DAY
     Dates: start: 20090823, end: 20091001

REACTIONS (6)
  - CRYING [None]
  - DEPRESSION [None]
  - DRUG DEPENDENCE [None]
  - HEADACHE [None]
  - IRRITABILITY [None]
  - SUICIDAL IDEATION [None]
